FAERS Safety Report 4585943-0 (Version None)
Quarter: 2005Q1

REPORT INFORMATION
  Report Type: 
  Country: None (occurrence: None)
  Receive Date: 20050214
  Receipt Date: 20050131
  Transmission Date: 20050727
  Serious: Yes (Hospitalization)
  Sender: FDA-Public Use
  Company Number: HQWYE028602FEB05

PATIENT
  Age: 31 Year
  Sex: Female

DRUGS (23)
  1. RHEUMATREX [Suspect]
     Indication: RHEUMATOID ARTHRITIS
     Dosage: 8 MG 1X PER 1 WK ORAL
     Route: 048
     Dates: start: 20040510, end: 20040929
  2. ABILIT (SULPIRIDE,) [Suspect]
     Indication: DEPRESSION
     Dosage: 150 MG 1X PER 1 DAY ORAL
     Route: 048
     Dates: start: 20040827
  3. BUP-4 (PROPIVERINE HYDROCHLORIDE,) [Suspect]
     Indication: POLLAKIURIA
     Dosage: 20 MG 1X PER 1 DAY ORAL
     Route: 048
     Dates: start: 20040831
  4. ETODOLAC [Suspect]
     Indication: RHEUMATOID ARTHRITIS
     Dosage: SEE IMAGE
     Route: 048
     Dates: start: 20040603, end: 20040616
  5. MEILAX (ETHYL LOFLAZEPATE,) [Suspect]
     Indication: DEPRESSION
     Dosage: 2 MG 1X PER 1 DAY ORAL
     Route: 048
     Dates: start: 20040916
  6. PREDNISONE [Suspect]
     Indication: RHEUMATOID ARTHRITIS
     Dosage: SEE IMAGE
     Route: 048
     Dates: start: 20040510, end: 20040526
  7. PREDNISONE [Suspect]
     Indication: RHEUMATOID ARTHRITIS
     Dosage: SEE IMAGE
     Route: 048
     Dates: start: 20040527, end: 20040616
  8. PREDNISONE [Suspect]
     Indication: RHEUMATOID ARTHRITIS
     Dosage: SEE IMAGE
     Route: 048
     Dates: start: 20040617, end: 20040728
  9. PREDNISONE [Suspect]
     Indication: RHEUMATOID ARTHRITIS
     Dosage: SEE IMAGE
     Route: 048
     Dates: start: 20040729, end: 20040915
  10. PREDNISONE [Suspect]
     Indication: RHEUMATOID ARTHRITIS
     Dosage: SEE IMAGE
     Route: 048
     Dates: start: 20040916
  11. REMICADE [Suspect]
     Indication: RHEUMATOID ARTHRITIS
     Dosage: 3 MG/KG/DAY INTRAVENOUS
     Route: 042
     Dates: start: 20040510, end: 20040510
  12. REMICADE [Suspect]
     Indication: RHEUMATOID ARTHRITIS
     Dosage: 3 MG/KG/DAY INTRAVENOUS
     Route: 042
     Dates: start: 20040524, end: 20040524
  13. REMICADE [Suspect]
     Indication: RHEUMATOID ARTHRITIS
     Dosage: 3 MG/KG/DAY INTRAVENOUS
     Route: 042
     Dates: start: 20040621, end: 20040621
  14. REMICADE [Suspect]
     Indication: RHEUMATOID ARTHRITIS
     Dosage: 3 MG/KG/DAY INTRAVENOUS
     Route: 042
     Dates: start: 20040816, end: 20040816
  15. ZOLPIDEM TARTRATE [Suspect]
     Indication: INSOMNIA
     Dosage: 10 MG 1X PER 1 DAY ORAL
     Route: 048
     Dates: start: 20040510, end: 20040623
  16. ZOLPIDEM TARTRATE [Suspect]
     Indication: INSOMNIA
     Dosage: 10 MG 1X PER 1 DAY ORAL
     Route: 048
     Dates: start: 20040825
  17. LOXONIN (LOXOPROFEN SODIUM) [Concomitant]
  18. DEPAS (ETIZOLAM) [Concomitant]
  19. PAXIL [Concomitant]
  20. BONALON (ALENDRONATE SODIUM) [Concomitant]
  21. NEUROTROPIN (ORGAN LYSATE, STANDARDIZED) [Concomitant]
  22. HALCION [Concomitant]
  23. PREDNISOLONE [Concomitant]

REACTIONS (6)
  - BLOOD BETA-D-GLUCAN DECREASED [None]
  - DYSPNOEA [None]
  - INTERSTITIAL LUNG DISEASE [None]
  - MALAISE [None]
  - NAUSEA [None]
  - PULMONARY HAEMORRHAGE [None]
